FAERS Safety Report 9032635 (Version 1)
Quarter: 2013Q1

REPORT INFORMATION
  Report Type: Spontaneous
  Country: US (occurrence: US)
  Receive Date: 20130125
  Receipt Date: 20130125
  Transmission Date: 20140127
  Serious: Yes (Other)
  Sender: FDA-Public Use
  Company Number: US-TARO-2013P1000931

PATIENT
  Age: 45 Year
  Sex: Male
  Weight: 103 kg

DRUGS (12)
  1. WARFARIN [Suspect]
     Dates: end: 20110909
  2. WARFARIN [Suspect]
     Dates: start: 20110914, end: 20110921
  3. WARFARIN [Suspect]
     Dates: start: 20110921
  4. WARFARIN [Suspect]
     Dates: end: 20111202
  5. WARFARIN [Suspect]
     Dates: start: 20111202, end: 20111216
  6. WARFARIN [Suspect]
     Dates: start: 20111216
  7. TELAPREVIR [Suspect]
     Route: 048
     Dates: start: 20110907, end: 20111129
  8. PEGINTERFERON ALFA-2A [Concomitant]
     Route: 058
     Dates: start: 20110907
  9. RIBAVIRIN [Concomitant]
     Route: 048
     Dates: start: 20110907
  10. ENALAPRIL MALEATE [Concomitant]
     Route: 048
  11. METOPROLOL [Concomitant]
     Route: 048
  12. ASPIRIN [Concomitant]
     Route: 048

REACTIONS (2)
  - International normalised ratio increased [Recovered/Resolved]
  - Drug interaction [Recovered/Resolved]
